FAERS Safety Report 19187798 (Version 3)
Quarter: 2021Q3

REPORT INFORMATION
  Report Type: Report from Study
  Country: US (occurrence: US)
  Receive Date: 20210428
  Receipt Date: 20210929
  Transmission Date: 20211014
  Serious: No
  Sender: FDA-Public Use
  Company Number: NVSC2021US095127

PATIENT
  Sex: Female

DRUGS (1)
  1. ENTRESTO [Suspect]
     Active Substance: SACUBITRIL\VALSARTAN
     Indication: PRODUCT USED FOR UNKNOWN INDICATION
     Dosage: UNK UNK, UNKNOWN
     Route: 065

REACTIONS (7)
  - Hypersensitivity [Unknown]
  - Weight increased [Unknown]
  - Wheezing [Recovered/Resolved]
  - Unevaluable event [Unknown]
  - Throat clearing [Unknown]
  - Weight decreased [Unknown]
  - Gallbladder disorder [Unknown]
